APPROVED DRUG PRODUCT: MIVACURIUM CHLORIDE
Active Ingredient: MIVACURIUM CHLORIDE
Strength: EQ 20MG BASE/10ML (EQ 2MG BASE/ML)
Dosage Form/Route: SOLUTION;INTRAVENOUS
Application: A209708 | Product #002
Applicant: WOODWARD PHARMA SERVICES LLC
Approved: Oct 12, 2021 | RLD: No | RS: No | Type: DISCN